FAERS Safety Report 8505619-4 (Version None)
Quarter: 2012Q3

REPORT INFORMATION
  Report Type: 
  Country: None (occurrence: None)
  Receive Date: 20120712
  Receipt Date: 20120627
  Transmission Date: 20120928
  Serious: Yes (Death)
  Sender: FDA-Public Use
  Company Number: US-PFIZER INC-2012148574

PATIENT
  Age: 34 Year
  Sex: Male

DRUGS (8)
  1. PREGABALIN [Suspect]
     Dosage: UNK
     Route: 065
  2. KEPPRA [Suspect]
     Dosage: UNK
     Route: 065
  3. NORTRIPTYLINE HCL [Suspect]
     Dosage: UNK
     Route: 065
  4. LAMOTRIGINE [Suspect]
     Dosage: UNK
     Route: 065
  5. MORPHINE SUL HYT [Suspect]
     Dosage: UNK
     Route: 065
  6. TRAZODONE HCL [Suspect]
     Dosage: UNK
     Route: 065
  7. AMITRIPTYLINE HCL [Suspect]
     Dosage: UNK
     Route: 065
  8. DIPHENHYDRAMINE HCL [Suspect]
     Dosage: UNK
     Route: 065

REACTIONS (3)
  - ACCIDENTAL POISONING [None]
  - ACCIDENT [None]
  - TOXICITY TO VARIOUS AGENTS [None]
